FAERS Safety Report 19253755 (Version 2)
Quarter: 2021Q3

REPORT INFORMATION
  Report Type: Spontaneous
  Country: BR (occurrence: BR)
  Receive Date: 20210513
  Receipt Date: 20210810
  Transmission Date: 20211014
  Serious: Yes (Other)
  Sender: FDA-Public Use
  Company Number: BR-ROCHE-2824129

PATIENT
  Sex: Female
  Weight: 62.6 kg

DRUGS (14)
  1. RANITIDINE. [Concomitant]
     Active Substance: RANITIDINE
  2. PURAN [Concomitant]
     Active Substance: LEVOTHYROXINE SODIUM
  3. LEXOTAN [Concomitant]
     Active Substance: BROMAZEPAM
     Dosage: 1 OR 2 TABLETS
  4. MOTILIUM [Concomitant]
     Active Substance: DOMPERIDONE
  5. LOSARTAN. [Concomitant]
     Active Substance: LOSARTAN
  6. ROSUVASTATIN. [Concomitant]
     Active Substance: ROSUVASTATIN
  7. OMEGA 3 [Concomitant]
     Active Substance: OMEGA-3 FATTY ACIDS
     Dosage: 2 TABLETS PER DAY
  8. AREDS [Concomitant]
     Active Substance: MINERALS\VITAMINS
  9. AVASTIN [Suspect]
     Active Substance: BEVACIZUMAB
     Indication: OVARIAN CANCER
     Route: 065
  10. FAULDCARBO [Suspect]
     Active Substance: CARBOPLATIN
     Indication: OVARIAN CANCER
     Route: 065
  11. ONTAX [Suspect]
     Active Substance: PACLITAXEL
     Indication: OVARIAN CANCER
     Route: 065
  12. VONAU FLASH [Concomitant]
     Active Substance: ONDANSETRON HYDROCHLORIDE
  13. DECADRON [Concomitant]
     Active Substance: DEXAMETHASONE
  14. RANITIDINE HYDROCHLORIDE. [Concomitant]
     Active Substance: RANITIDINE HYDROCHLORIDE

REACTIONS (5)
  - Phlebitis [Recovered/Resolved]
  - Erythema [Recovered/Resolved]
  - Neoplasm [Recovered/Resolved]
  - Oedema [Recovered/Resolved]
  - Ill-defined disorder [Recovered/Resolved]
